FAERS Safety Report 8237594-4 (Version None)
Quarter: 2012Q1

REPORT INFORMATION
  Report Type: 
  Country: None (occurrence: None)
  Receive Date: 20120323
  Receipt Date: 20120312
  Transmission Date: 20120608
  Serious: Yes (Other)
  Sender: FDA-Public Use
  Company Number: 2012-001031

PATIENT
  Sex: Female

DRUGS (1)
  1. PYRIDIUM (PHENAZOPYRIDINE HYDROCHLORIDE) TABLET, UNKMG [Suspect]
     Dosage: ORAL
     Route: 048

REACTIONS (3)
  - RASH [None]
  - RENAL FAILURE ACUTE [None]
  - DRUG HYPERSENSITIVITY [None]
